FAERS Safety Report 21612493 (Version 3)
Quarter: 2022Q4

REPORT INFORMATION
  Report Type: Spontaneous
  Country: US (occurrence: US)
  Receive Date: 20221118
  Receipt Date: 20221212
  Transmission Date: 20230113
  Serious: No
  Sender: FDA-Public Use
  Company Number: US-002147023-NVSC2022US253000

PATIENT
  Sex: Male

DRUGS (3)
  1. XIIDRA [Suspect]
     Active Substance: LIFITEGRAST
     Indication: Product used for unknown indication
     Dosage: 0.2 ML, BID
     Route: 047
     Dates: start: 20221017, end: 20221106
  2. LISINOPRIL [Concomitant]
     Active Substance: LISINOPRIL
     Indication: Product used for unknown indication
     Dosage: 10 MG, QD
     Route: 065
  3. TYLENOL [Concomitant]
     Active Substance: ACETAMINOPHEN
     Indication: Product used for unknown indication
     Dosage: UNK (2 TO 4 PER WEEK)
     Route: 065

REACTIONS (4)
  - Abnormal sensation in eye [Unknown]
  - Foreign body sensation in eyes [Unknown]
  - Eye pruritus [Unknown]
  - Vision blurred [Unknown]
